FAERS Safety Report 22912410 (Version 2)
Quarter: 2023Q4

REPORT INFORMATION
  Report Type: Report from Study
  Country: CO (occurrence: CO)
  Receive Date: 20230906
  Receipt Date: 20231002
  Transmission Date: 20240109
  Serious: Yes (Death, Disabling)
  Sender: FDA-Public Use
  Company Number: CO-002147023-NVSC2023CO190640

PATIENT
  Sex: Female

DRUGS (3)
  1. KISQALI [Suspect]
     Active Substance: RIBOCICLIB
     Indication: Hormone receptor positive HER2 negative breast cancer
     Dosage: UNK, QD
     Route: 048
  2. KISQALI [Suspect]
     Active Substance: RIBOCICLIB
     Dosage: UNK
     Route: 048
  3. FEMARA [Suspect]
     Active Substance: LETROZOLE
     Indication: Breast cancer
     Dosage: UNK
     Route: 048

REACTIONS (3)
  - Death [Fatal]
  - Speech disorder [Unknown]
  - Gait inability [Unknown]
